FAERS Safety Report 6388574-5 (Version None)
Quarter: 2009Q4

REPORT INFORMATION
  Report Type: 
  Country: None (occurrence: None)
  Receive Date: 20091005
  Receipt Date: 20090928
  Transmission Date: 20100525
  Serious: Yes (Other)
  Sender: FDA-Public Use
  Company Number: US-GENENTECH-290313

PATIENT
  Sex: Female
  Weight: 92.971 kg

DRUGS (1)
  1. XOLAIR [Suspect]
     Indication: DRUG USE FOR UNKNOWN INDICATION
     Dosage: 150 MG, Q2W
     Route: 058
     Dates: end: 20090910

REACTIONS (4)
  - EYE PRURITUS [None]
  - LIP SWELLING [None]
  - RASH [None]
  - URTICARIA [None]
